FAERS Safety Report 5925123-7 (Version None)
Quarter: 2008Q4

REPORT INFORMATION
  Report Type: 
  Country: None (occurrence: None)
  Receive Date: 20081021
  Receipt Date: 20081014
  Transmission Date: 20090506
  Serious: Yes (Hospitalization)
  Sender: FDA-Public Use
  Company Number: AR-ASTRAZENECA-2008UW22707

PATIENT
  Age: 43 Year
  Sex: Female

DRUGS (1)
  1. DURACAINE [Suspect]
     Indication: SPINAL ANAESTHESIA
     Route: 024
     Dates: start: 20080916, end: 20080916

REACTIONS (1)
  - ANAESTHETIC COMPLICATION [None]
